FAERS Safety Report 6272268-0 (Version None)
Quarter: 2009Q3

REPORT INFORMATION
  Report Type: 
  Country: None (occurrence: None)
  Receive Date: 20090717
  Receipt Date: 20090709
  Transmission Date: 20100115
  Serious: Yes (Other)
  Sender: FDA-Public Use
  Company Number: NL-PFIZER INC-2009239119

PATIENT
  Age: 59 Year

DRUGS (5)
  1. LIPITOR [Suspect]
     Indication: HYPERCHOLESTEROLAEMIA
     Dosage: 40 MG, 1X/DAY
     Route: 048
     Dates: start: 20090608, end: 20090618
  2. METHOTREXATE [Concomitant]
     Indication: RHEUMATOID ARTHRITIS
     Dosage: 5 MG, UNK
     Dates: start: 20020101
  3. DURATEARS [Concomitant]
  4. VIDISIC [Concomitant]
  5. FOLIC ACID [Concomitant]

REACTIONS (1)
  - RHEUMATOID ARTHRITIS [None]
